FAERS Safety Report 8378125-8 (Version None)
Quarter: 2012Q2

REPORT INFORMATION
  Report Type: 
  Country: None (occurrence: None)
  Receive Date: 20120522
  Receipt Date: 20120515
  Transmission Date: 20120825
  Serious: Yes (Death, Other)
  Sender: FDA-Public Use
  Company Number: BR-BAXTER-2012BAX005927

PATIENT
  Sex: Female

DRUGS (12)
  1. WARFARIN SODIUM [Concomitant]
     Route: 048
  2. METOCLOPRAMIDE [Concomitant]
     Route: 042
  3. NISTATIN [Concomitant]
     Route: 065
  4. MINERAL OIL [Concomitant]
     Route: 048
  5. CYCLOPHOSPHAMIDE [Suspect]
     Route: 048
     Dates: start: 20120405, end: 20120424
  6. LEVOTIROXIN [Concomitant]
     Route: 065
  7. PREDNISOLONE [Concomitant]
     Route: 048
  8. DIPIRONE [Concomitant]
     Route: 042
  9. ONDANSETRON [Concomitant]
     Route: 042
  10. OMEPRAZOLE [Concomitant]
     Route: 048
  11. TRAMADOL HYDROCHLORIDE [Concomitant]
     Route: 042
  12. DIAZEPAM [Concomitant]
     Route: 048

REACTIONS (3)
  - SHOCK [None]
  - BLOOD URINE [None]
  - CARDIO-RESPIRATORY ARREST [None]
